FAERS Safety Report 7378458-8 (Version None)
Quarter: 2011Q1

REPORT INFORMATION
  Report Type: 
  Country: None (occurrence: None)
  Receive Date: 20110328
  Receipt Date: 20110315
  Transmission Date: 20110831
  Serious: Yes (Death, Hospitalization)
  Sender: FDA-Public Use
  Company Number: GB-ELI_LILLY_AND_COMPANY-GB201103002797

PATIENT
  Sex: Male

DRUGS (12)
  1. VITAMIN B COMPLEX CAP [Concomitant]
     Indication: RETINOPATHY
  2. PEMETREXED [Suspect]
     Indication: NON-SMALL CELL LUNG CANCER STAGE III
     Dosage: 950 MG, EVERY 3 WEEKS
     Route: 042
     Dates: start: 20110207
  3. FOLIC ACID [Concomitant]
     Indication: PROPHYLAXIS
     Dates: start: 20110119
  4. VITAMIN B-12 [Concomitant]
     Indication: PROPHYLAXIS
     Dates: start: 20110119
  5. RADIATION [Suspect]
     Indication: NON-SMALL CELL LUNG CANCER STAGE III
     Dosage: 2 GY, DAILY (1/D) 5 DAYS A WEEK
     Dates: start: 20110207
  6. PREDNISOLONE [Concomitant]
     Indication: RETINOPATHY
  7. CLEXANE [Concomitant]
     Indication: PULMONARY EMBOLISM
  8. CISPLATIN [Suspect]
     Indication: NON-SMALL CELL LUNG CANCER STAGE III
     Dosage: 145 MG, EVERY 3 WEEKS
     Route: 042
     Dates: start: 20110207
  9. DEXAMETHASONE [Concomitant]
     Indication: PROPHYLAXIS
     Dosage: UNK, UNK
  10. OMEPRAZOLE [Concomitant]
     Indication: PULMONARY EMBOLISM
     Dates: start: 20110127
  11. THIAMINE [Concomitant]
     Indication: RETINOPATHY
  12. CALCICHEW [Concomitant]
     Indication: PROPHYLAXIS

REACTIONS (5)
  - COUGH [None]
  - FEBRILE NEUTROPENIA [None]
  - PNEUMONIA [None]
  - NEUTROPENIC SEPSIS [None]
  - DYSPNOEA [None]
